FAERS Safety Report 24084558 (Version 1)
Quarter: 2024Q3

REPORT INFORMATION
  Report Type: Report from Study
  Country: US (occurrence: US)
  Receive Date: 20240712
  Receipt Date: 20240712
  Transmission Date: 20241017
  Serious: Yes (Hospitalization, Other)
  Sender: ACCORD
  Company Number: US-Accord-434809

PATIENT
  Age: 82 Year
  Sex: Male

DRUGS (1)
  1. APIXABAN [Suspect]
     Active Substance: APIXABAN
     Indication: Atrial fibrillation

REACTIONS (5)
  - Subarachnoid haemorrhage [Unknown]
  - Cerebellar haemorrhage [Unknown]
  - Intraventricular haemorrhage [Unknown]
  - Haemorrhagic arteriovenous malformation [Unknown]
  - Hydrocephalus [Unknown]
